FAERS Safety Report 15492891 (Version 1)
Quarter: 2018Q4

REPORT INFORMATION
  Report Type: Spontaneous
  Country: US (occurrence: US)
  Receive Date: 20181004
  Receipt Date: 20181004
  Transmission Date: 20190205
  Serious: Yes (Other)
  Sender: FDA-Public Use
  Company Number: None

PATIENT
  Age: 53 Year
  Sex: Male
  Weight: 191.8 kg

DRUGS (1)
  1. TAMSULOSIN [Suspect]
     Active Substance: TAMSULOSIN
     Indication: NEPHROLITHIASIS
     Route: 048
     Dates: start: 20180423, end: 20180717

REACTIONS (2)
  - Blood glucose increased [None]
  - Product label issue [None]

NARRATIVE: CASE EVENT DATE: 20180717
